FAERS Safety Report 9275360 (Version 2)
Quarter: 2013Q4

REPORT INFORMATION
  Report Type: Report from Study
  Country: CA (occurrence: CA)
  Receive Date: 20130507
  Receipt Date: 20131231
  Transmission Date: 20140711
  Serious: Yes (Other)
  Sender: FDA-Public Use
  Company Number: CA-JNJFOC-20130312031

PATIENT
  Sex: Male
  Weight: 79 kg

DRUGS (3)
  1. STELARA [Suspect]
     Indication: PSORIASIS
     Route: 058
     Dates: start: 20110825
  2. LITHIUM [Concomitant]
     Indication: BIPOLAR DISORDER
     Route: 048
  3. SEROQUEL [Concomitant]
     Indication: BIPOLAR DISORDER
     Route: 048

REACTIONS (2)
  - Bipolar disorder [Recovered/Resolved]
  - Influenza like illness [Recovered/Resolved]
